FAERS Safety Report 24902860 (Version 2)
Quarter: 2025Q1

REPORT INFORMATION
  Report Type: Spontaneous
  Country: US (occurrence: None)
  Receive Date: 20250130
  Receipt Date: 20250211
  Transmission Date: 20250409
  Serious: No
  Sender: NATCO PHARMA
  Company Number: US-NATCOUSA-2025-NATCOUSA-000246

PATIENT
  Age: 59 Year
  Sex: Female
  Weight: 83.91 kg

DRUGS (1)
  1. ANASTROZOLE [Suspect]
     Active Substance: ANASTROZOLE
     Indication: Breast cancer
     Route: 065

REACTIONS (20)
  - Anxiety [Recovered/Resolved]
  - Feeling abnormal [Recovered/Resolved]
  - Malaise [Recovered/Resolved]
  - Anger [Not Recovered/Not Resolved]
  - Aggression [Recovered/Resolved]
  - Depressed mood [Not Recovered/Not Resolved]
  - Decreased interest [Unknown]
  - Memory impairment [Unknown]
  - Apathy [Unknown]
  - Dizziness [Unknown]
  - Libido decreased [Unknown]
  - Pain in extremity [Unknown]
  - Tinnitus [Unknown]
  - Restless legs syndrome [Unknown]
  - Dry eye [Unknown]
  - Arthralgia [Unknown]
  - Abnormal dreams [Unknown]
  - Sleep disorder [Unknown]
  - Emotional poverty [Unknown]
  - Formication [Unknown]
